FAERS Safety Report 6239486-9 (Version None)
Quarter: 2009Q2

REPORT INFORMATION
  Report Type: 
  Country: None (occurrence: None)
  Receive Date: 20090618
  Receipt Date: 20090618
  Transmission Date: 20091009
  Serious: No
  Sender: FDA-Public Use
  Company Number: None

PATIENT
  Sex: Male
  Weight: 97.5234 kg

DRUGS (2)
  1. ZICAM SEASONAL ALLERGY RELIEF ZICAM LLC [Suspect]
     Indication: ALLERGY TO PLANTS
     Dosage: 2 SQUIRTS DAILY NASAL
     Route: 045
     Dates: start: 20050601, end: 20090616
  2. ZICAM SEASONAL ALLERGY RELIEF ZICAM LLC [Suspect]
     Indication: SEASONAL ALLERGY
     Dosage: 2 SQUIRTS DAILY NASAL
     Route: 045
     Dates: start: 20050601, end: 20090616

REACTIONS (1)
  - ANOSMIA [None]
